FAERS Safety Report 19862483 (Version 1)
Quarter: 2021Q3

REPORT INFORMATION
  Report Type: Spontaneous
  Country: FR (occurrence: FR)
  Receive Date: 20210921
  Receipt Date: 20210921
  Transmission Date: 20211014
  Serious: Yes (Death)
  Sender: FDA-Public Use
  Company Number: FR-MYLANLABS-2021M1064237

PATIENT
  Age: 62 Year
  Sex: Female
  Weight: 89 kg

DRUGS (2)
  1. ZAMUDOL [Suspect]
     Active Substance: TRAMADOL HYDROCHLORIDE
     Indication: PSYCHOTIC DISORDER
     Dosage: 200 MILLIGRAM, QD
     Route: 048
     Dates: end: 20210408
  2. OLANZAPINE ARROW [Suspect]
     Active Substance: OLANZAPINE
     Indication: PSYCHOTIC DISORDER
     Dosage: 30 MILLIGRAM, QD
     Route: 048
     Dates: end: 20210408

REACTIONS (2)
  - Gastrointestinal haemorrhage [Fatal]
  - Sudden death [Fatal]

NARRATIVE: CASE EVENT DATE: 20210408
